FAERS Safety Report 13227171 (Version 1)
Quarter: 2017Q1

REPORT INFORMATION
  Report Type: Spontaneous
  Country: US (occurrence: US)
  Receive Date: 20170213
  Receipt Date: 20170213
  Transmission Date: 20170428
  Serious: Yes (Other)
  Sender: FDA-Public Use
  Company Number: US-TEVA-738595USA

PATIENT
  Age: 52 Year
  Sex: Female

DRUGS (2)
  1. VENLAFAXINE [Suspect]
     Active Substance: VENLAFAXINE HYDROCHLORIDE
     Indication: DEPRESSION
     Dosage: 75 MG DAILY
     Route: 065
  2. HYPERICUM [Concomitant]
     Active Substance: ST. JOHN^S WORT
     Indication: DEPRESSION
     Dosage: 600 MG DAILY
     Route: 065

REACTIONS (2)
  - Bipolar disorder [Recovering/Resolving]
  - Herbal interaction [Recovering/Resolving]
